FAERS Safety Report 8424071-0 (Version None)
Quarter: 2012Q2

REPORT INFORMATION
  Report Type: 
  Country: None (occurrence: None)
  Receive Date: 20120608
  Receipt Date: 20110628
  Transmission Date: 20120825
  Serious: No
  Sender: FDA-Public Use
  Company Number: US-ASTRAZENECA-2011SE33645

PATIENT
  Age: 15 Month
  Sex: Male
  Weight: 12.2 kg

DRUGS (3)
  1. XOPENEX [Concomitant]
     Indication: ASTHMA
  2. PULMICORT [Suspect]
     Route: 055
     Dates: start: 20091208, end: 20110302
  3. PULMICORT [Suspect]
     Route: 055
     Dates: end: 20110302

REACTIONS (3)
  - ARTHRALGIA [None]
  - GAIT DISTURBANCE [None]
  - PAIN IN EXTREMITY [None]
